FAERS Safety Report 20109074 (Version 1)
Quarter: 2021Q4

REPORT INFORMATION
  Report Type: Spontaneous
  Country: CO (occurrence: CO)
  Receive Date: 20211124
  Receipt Date: 20211124
  Transmission Date: 20220303
  Serious: No
  Sender: FDA-Public Use
  Company Number: CO-PFIZER INC-2020312982

PATIENT
  Age: 10 Year
  Sex: Male
  Weight: 44 kg

DRUGS (1)
  1. GENOTROPIN [Suspect]
     Active Substance: SOMATROPIN
     Indication: Growth hormone deficiency
     Dosage: 1.2 MG, DAILY
     Route: 058
     Dates: start: 201704, end: 20200809

REACTIONS (4)
  - Device information output issue [Unknown]
  - Drug dose omission by device [Unknown]
  - Expired device used [Unknown]
  - Device use issue [Unknown]

NARRATIVE: CASE EVENT DATE: 20200809
